FAERS Safety Report 4427351-9 (Version None)
Quarter: 2004Q3

REPORT INFORMATION
  Report Type: 
  Country: None (occurrence: None)
  Receive Date: 20040816
  Receipt Date: 20040816
  Transmission Date: 20050211
  Serious: Yes (Other)
  Sender: FDA-Public Use
  Company Number: None

PATIENT
  Age: 82 Year
  Sex: Male
  Weight: 79 kg

DRUGS (2)
  1. VANCOMYCIN [Suspect]
     Indication: URINARY TRACT INFECTION
     Dosage: 900 MG IV QD
     Route: 042
     Dates: start: 20040730, end: 20040805
  2. DEXTROSE 5% [Suspect]
     Dosage: 250 ML IV QD
     Route: 042

REACTIONS (2)
  - ERYTHEMA [None]
  - RASH [None]
